FAERS Safety Report 15689876 (Version 1)
Quarter: 2018Q4

REPORT INFORMATION
  Report Type: Report from Study
  Country: CN (occurrence: CN)
  Receive Date: 20181205
  Receipt Date: 20181205
  Transmission Date: 20190205
  Serious: Yes (Other)
  Sender: FDA-Public Use
  Company Number: CN-ROCHE-2216582

PATIENT

DRUGS (8)
  1. OXALIPLATIN. [Suspect]
     Active Substance: OXALIPLATIN
     Indication: METASTASES TO LIVER
  2. BEVACIZUMAB. [Suspect]
     Active Substance: BEVACIZUMAB
     Indication: METASTASES TO LIVER
  3. FOLINIC ACID [Suspect]
     Active Substance: LEUCOVORIN
     Indication: COLORECTAL CANCER
     Dosage: HEPATIC ARTERY INFUSION
     Route: 013
  4. FOLINIC ACID [Suspect]
     Active Substance: LEUCOVORIN
     Indication: METASTASES TO LIVER
  5. 5-FLUOROURACIL [Suspect]
     Active Substance: FLUOROURACIL
     Indication: METASTASES TO LIVER
  6. BEVACIZUMAB. [Suspect]
     Active Substance: BEVACIZUMAB
     Indication: COLORECTAL CANCER
     Dosage: HEPATIC ARTERY INFUSION
     Route: 013
  7. 5-FLUOROURACIL [Suspect]
     Active Substance: FLUOROURACIL
     Indication: COLORECTAL CANCER
     Dosage: HEPATIC ARTERY INFUSION
     Route: 013
  8. OXALIPLATIN. [Suspect]
     Active Substance: OXALIPLATIN
     Indication: COLORECTAL CANCER
     Dosage: HEPATIC ARTERY INFUSION
     Route: 013

REACTIONS (18)
  - Hypertension [Unknown]
  - Proteinuria [Unknown]
  - Neuropathy peripheral [Unknown]
  - Fatigue [Unknown]
  - Asthenia [Unknown]
  - Anaemia [Unknown]
  - Off label use [Unknown]
  - Leukopenia [Unknown]
  - Hepatic enzyme increased [Recovering/Resolving]
  - Vomiting [Unknown]
  - Neutropenia [Unknown]
  - Thrombocytopenia [Unknown]
  - Blood bilirubin increased [Unknown]
  - Nausea [Unknown]
  - Pain [Unknown]
  - Intentional product use issue [Unknown]
  - Pyrexia [Unknown]
  - Diarrhoea [Unknown]
